FAERS Safety Report 16485753 (Version 1)
Quarter: 2019Q2

REPORT INFORMATION
  Report Type: Spontaneous
  Country: US (occurrence: US)
  Receive Date: 20190627
  Receipt Date: 20190627
  Transmission Date: 20190711
  Serious: No
  Sender: FDA-Public Use
  Company Number: US-SA-2019SA174530

PATIENT
  Age: 21 Year
  Sex: Female

DRUGS (3)
  1. OMEGA 3 [FISH OIL] [Concomitant]
     Active Substance: FISH OIL
  2. DUPIXENT [Suspect]
     Active Substance: DUPILUMAB
     Indication: DERMATITIS ATOPIC
     Dosage: 300 MG, QOW
     Route: 058
     Dates: start: 20190109
  3. MULTIVITAMIN [VITAMINS NOS] [Concomitant]

REACTIONS (1)
  - Dermatitis [Not Recovered/Not Resolved]
